FAERS Safety Report 10438267 (Version 3)
Quarter: 2014Q4

REPORT INFORMATION
  Report Type: Spontaneous
  Country: DE (occurrence: DE)
  Receive Date: 20140908
  Receipt Date: 20141001
  Transmission Date: 20150528
  Serious: Yes (Hospitalization, Other)
  Sender: FDA-Public Use
  Company Number: DE-NOVOPROD-421146

PATIENT
  Age: 69 Year
  Sex: Male
  Weight: 93 kg

DRUGS (3)
  1. PROTAPHANE [Suspect]
     Active Substance: INSULIN HUMAN
     Indication: PRODUCT USED FOR UNKNOWN INDICATION
     Dosage: 20 U, QD
     Route: 065
     Dates: start: 2001
  2. ACTRAPID [Suspect]
     Active Substance: INSULIN HUMAN
     Dosage: 20 U, QD (2 TIMES)
     Route: 065
     Dates: start: 20100720
  3. ACTRAPID [Suspect]
     Active Substance: INSULIN HUMAN
     Indication: PRODUCT USED FOR UNKNOWN INDICATION
     Dosage: 20 U, TID
     Route: 065
     Dates: start: 2001

REACTIONS (3)
  - Loss of consciousness [Recovered/Resolved]
  - Extra dose administered [Recovered/Resolved]
  - Hypoglycaemia [Recovered/Resolved]

NARRATIVE: CASE EVENT DATE: 20100720
